FAERS Safety Report 11111633 (Version 1)
Quarter: 2015Q2

REPORT INFORMATION
  Report Type: Spontaneous
  Country: US (occurrence: US)
  Receive Date: 20150514
  Receipt Date: 20150514
  Transmission Date: 20150821
  Serious: Yes (Hospitalization)
  Sender: FDA-Public Use
  Company Number: US-AUROBINDO-AUR-APL-2015-04216

PATIENT
  Sex: Female
  Weight: 69 kg

DRUGS (2)
  1. METOPROLOL 50MG [Suspect]
     Active Substance: METOPROLOL
     Indication: BLOOD PRESSURE
     Dosage: 50 MG, TWO TIMES A DAY
     Route: 065
  2. NIFEDIPINE. [Suspect]
     Active Substance: NIFEDIPINE
     Indication: PRODUCT USED FOR UNKNOWN INDICATION
     Dosage: 30 MG, ONCE A DAY
     Route: 048

REACTIONS (10)
  - Cardiovascular disorder [Unknown]
  - Arteriosclerosis [Unknown]
  - Stent placement [Unknown]
  - Thrombosis [Unknown]
  - Drug ineffective [Unknown]
  - Product quality issue [Unknown]
  - Hypertension [Unknown]
  - Product substitution issue [Unknown]
  - Abdominal discomfort [Unknown]
  - Malaise [Unknown]
